FAERS Safety Report 10963424 (Version 1)
Quarter: 2015Q1

REPORT INFORMATION
  Report Type: Spontaneous
  Country: US (occurrence: None)
  Receive Date: 20150327
  Receipt Date: 20150327
  Transmission Date: 20150721
  Serious: Yes (Death)
  Sender: FDA-Public Use
  Company Number: None

PATIENT
  Age: 80 Year
  Sex: Male
  Weight: 105 kg

DRUGS (9)
  1. ULTRAM [Concomitant]
     Active Substance: TRAMADOL HYDROCHLORIDE
  2. RAPAFLO [Concomitant]
     Active Substance: SILODOSIN
  3. XARELTO [Concomitant]
     Active Substance: RIVAROXABAN
  4. MEXITIL [Concomitant]
     Active Substance: MEXILETINE HYDROCHLORIDE
  5. AMIODARONE [Suspect]
     Active Substance: AMIODARONE
     Indication: VENTRICULAR TACHYCARDIA
     Route: 048
     Dates: start: 201409
  6. ASPIRIN. [Concomitant]
     Active Substance: ASPIRIN
  7. CORDARONE [Concomitant]
     Active Substance: AMIODARONE HYDROCHLORIDE
  8. LEVEMIR [Concomitant]
     Active Substance: INSULIN DETEMIR
  9. PLAVIX [Concomitant]
     Active Substance: CLOPIDOGREL BISULFATE

REACTIONS (3)
  - Respiratory failure [None]
  - Hypoxia [None]
  - Pulmonary toxicity [None]

NARRATIVE: CASE EVENT DATE: 20150219
